FAERS Safety Report 9009598 (Version 1)
Quarter: 2013Q1

REPORT INFORMATION
  Report Type: Spontaneous
  Country: US (occurrence: US)
  Receive Date: 20130110
  Receipt Date: 20130110
  Transmission Date: 20140127
  Serious: Yes (Death)
  Sender: FDA-Public Use
  Company Number: US-009507513-0909USA03246

PATIENT
  Age: 21 Year
  Sex: Male
  Weight: 70.31 kg

DRUGS (5)
  1. SINGULAIR [Suspect]
     Indication: MULTIPLE ALLERGIES
     Route: 048
     Dates: start: 19980101, end: 20041024
  2. SINGULAIR [Suspect]
     Indication: ASTHMA
  3. FLONASE [Concomitant]
  4. INTAL [Concomitant]
  5. PROVENTIL [Concomitant]

REACTIONS (4)
  - Completed suicide [Fatal]
  - Anxiety [Fatal]
  - Depression [Fatal]
  - Mood altered [Fatal]
